FAERS Safety Report 8960440 (Version 1)
Quarter: 2012Q4

REPORT INFORMATION
  Report Type: Spontaneous
  Country: US (occurrence: None)
  Receive Date: 20121211
  Receipt Date: 20121211
  Transmission Date: 20130627
  Serious: Yes (Other)
  Sender: FDA-Public Use
  Company Number: None

PATIENT
  Age: 67 Year
  Sex: Male

DRUGS (1)
  1. PRAZOSIN [Suspect]
     Route: 048
     Dates: start: 20121123

REACTIONS (3)
  - Pollakiuria [None]
  - Depression [None]
  - Mood altered [None]
